FAERS Safety Report 12278592 (Version 2)
Quarter: 2016Q3

REPORT INFORMATION
  Report Type: Report from Study
  Country: BR (occurrence: BR)
  Receive Date: 20160418
  Receipt Date: 20160722
  Transmission Date: 20161109
  Serious: Yes (Hospitalization)
  Sender: FDA-Public Use
  Company Number: PHHY2016BR051651

PATIENT
  Sex: Male
  Weight: 59 kg

DRUGS (1)
  1. EXJADE [Suspect]
     Active Substance: DEFERASIROX
     Indication: SICKLE CELL ANAEMIA
     Dosage: 25 MG/KG, QD (3 TABLETS OF 500 MG)
     Route: 048
     Dates: start: 2013

REACTIONS (5)
  - Pain in extremity [Recovered/Resolved]
  - Musculoskeletal pain [Recovered/Resolved]
  - Pain [Unknown]
  - Serum ferritin increased [Not Recovered/Not Resolved]
  - Back pain [Recovered/Resolved]
